FAERS Safety Report 16398825 (Version 1)
Quarter: 2019Q2

REPORT INFORMATION
  Report Type: Spontaneous
  Country: CA (occurrence: CA)
  Receive Date: 20190606
  Receipt Date: 20190606
  Transmission Date: 20190711
  Serious: Yes (Other)
  Sender: FDA-Public Use
  Company Number: CA-009507513-1906CAN001171

PATIENT
  Sex: Male

DRUGS (2)
  1. GLUMETZA [Concomitant]
     Active Substance: METFORMIN HYDROCHLORIDE
  2. JANUMET XR [Suspect]
     Active Substance: METFORMIN HYDROCHLORIDE\SITAGLIPTIN PHOSPHATE
     Indication: DIABETES MELLITUS MANAGEMENT
     Dosage: STRENGTH 50/1000, UNIT NOT PROVIDED
     Route: 048
     Dates: end: 2019

REACTIONS (2)
  - Discomfort [Recovering/Resolving]
  - Abdominal discomfort [Recovering/Resolving]
